FAERS Safety Report 15147628 (Version 3)
Quarter: 2019Q1

REPORT INFORMATION
  Report Type: Spontaneous
  Country: US (occurrence: US)
  Receive Date: 20180716
  Receipt Date: 20190304
  Transmission Date: 20190417
  Serious: No
  Sender: FDA-Public Use
  Company Number: US-PFIZER INC-2018284061

PATIENT
  Age: 64 Year
  Sex: Female
  Weight: 81.63 kg

DRUGS (4)
  1. LYRICA [Suspect]
     Active Substance: PREGABALIN
     Dosage: 50 MG, 4X/DAY
     Route: 048
     Dates: start: 20190124
  2. LYRICA [Suspect]
     Active Substance: PREGABALIN
     Dosage: 50 MG, 4X/DAY
     Route: 048
     Dates: start: 2017
  3. LYRICA [Suspect]
     Active Substance: PREGABALIN
     Dosage: 50 MG, 4X/DAY
     Route: 048
     Dates: start: 20190220
  4. LYRICA [Suspect]
     Active Substance: PREGABALIN
     Indication: DIABETIC NEUROPATHY
     Dosage: 50 MG, 3X/DAY
     Dates: start: 2017

REACTIONS (2)
  - Off label use [Unknown]
  - Pain [Unknown]

NARRATIVE: CASE EVENT DATE: 2017
